FAERS Safety Report 4579090-1 (Version None)
Quarter: 2005Q1

REPORT INFORMATION
  Report Type: 
  Country: None (occurrence: None)
  Receive Date: 20050119
  Receipt Date: 20040726
  Transmission Date: 20050727
  Serious: Yes (Hospitalization)
  Sender: FDA-Public Use
  Company Number: A03200402552

PATIENT
  Age: 76 Year
  Sex: Male
  Weight: 80.7403 kg

DRUGS (20)
  1. PLAVIX [Suspect]
     Dosage: 75 MG QD - ORAL
     Route: 048
  2. METOPROLOL SUCCINATE [Concomitant]
  3. ISOSORBIDE [Concomitant]
  4. VALSARTAN [Concomitant]
  5. FENOFIBRATE [Concomitant]
  6. SIMVASTATIN [Concomitant]
  7. INSULIN [Concomitant]
  8. NASAL PREPARATION [Concomitant]
  9. HYDROCHLOROTHIAZIDE [Concomitant]
  10. CALCIUM GLUCONATE [Concomitant]
  11. MAGNESIUM [Concomitant]
  12. VITAMIN B-12 [Concomitant]
  13. MULTIVITAMIN [Concomitant]
  14. IRON [Concomitant]
  15. FOLIC ACID [Concomitant]
  16. CHONDROITIN SULFATE [Concomitant]
  17. GLUCOSAMINE + CHONDROITIN [Concomitant]
  18. SALSALATE [Concomitant]
  19. CELECOXIB [Concomitant]
  20. ACETYLSALICYLIC ACID [Concomitant]

REACTIONS (2)
  - CONTUSION [None]
  - RECTAL HAEMORRHAGE [None]
